FAERS Safety Report 4448858-4 (Version None)
Quarter: 2004Q3

REPORT INFORMATION
  Report Type: 
  Country: None (occurrence: None)
  Receive Date: 20040909
  Receipt Date: 20040827
  Transmission Date: 20050211
  Serious: Yes (Hospitalization, Other)
  Sender: FDA-Public Use
  Company Number: 2004061114

PATIENT
  Age: 60 Year
  Sex: Female

DRUGS (12)
  1. LIPITOR [Suspect]
     Indication: BLOOD CHOLESTEROL INCREASED
     Dosage: 20 MG (20 MG, 1 IN 1 D), ORAL
     Route: 048
  2. NEURONTIN [Suspect]
     Indication: PARAESTHESIA
     Dosage: 300 MG (300 MG, 1 IN 1  D), ORAL
     Route: 048
     Dates: start: 20040801
  3. VANCOMYCIN [Suspect]
     Indication: ILL-DEFINED DISORDER
     Dosage: INTRAVENOUS
     Route: 042
     Dates: start: 20040101, end: 20040101
  4. CEFAZOLIN SODIUM [Suspect]
     Indication: ILL-DEFINED DISORDER
     Dosage: INTRAVENOUS
     Route: 042
     Dates: start: 20040101, end: 20040101
  5. METOPROLOL TARTRATE [Concomitant]
  6. METFORMIN HCL [Concomitant]
  7. NOVOLIN 20/80 (INSULIN HUMAN, INSULIN ISOPHANE, HUMAN BIOSYNTHETIC) [Concomitant]
  8. FUROSEMIDE [Concomitant]
  9. POTSSIUM CHLORIDE (POTASSIUM CHLORIDE) [Concomitant]
  10. NICOTINIC ACID [Concomitant]
  11. ASPIRIN [Concomitant]
  12. LISINOPRIL [Concomitant]

REACTIONS (16)
  - CATARACT [None]
  - CORONARY ARTERY OCCLUSION [None]
  - DISEASE PROGRESSION [None]
  - DRUG HYPERSENSITIVITY [None]
  - FEELING HOT [None]
  - GLAUCOMA [None]
  - GOUT [None]
  - LOCALISED INFECTION [None]
  - MOVEMENT DISORDER [None]
  - MYALGIA [None]
  - PAIN [None]
  - PAIN IN EXTREMITY [None]
  - PARAESTHESIA [None]
  - POSTOPERATIVE INFECTION [None]
  - PRURITUS [None]
  - RASH [None]
